FAERS Safety Report 7879886-4 (Version None)
Quarter: 2011Q4

REPORT INFORMATION
  Report Type: 
  Country: None (occurrence: None)
  Receive Date: 20111101
  Receipt Date: 20111028
  Transmission Date: 20120403
  Serious: Yes (Disabling)
  Sender: FDA-Public Use
  Company Number: US-MERCK-1110USA04473

PATIENT
  Age: 75 Year
  Sex: Female

DRUGS (2)
  1. ACTONEL [Suspect]
     Route: 048
     Dates: start: 20040101, end: 20100501
  2. FOSAMAX [Suspect]
     Route: 048
     Dates: start: 19990101, end: 20040301

REACTIONS (3)
  - LOW TURNOVER OSTEOPATHY [None]
  - FEMORAL NECK FRACTURE [None]
  - FEMUR FRACTURE [None]
